FAERS Safety Report 5988895-1 (Version None)
Quarter: 2008Q4

REPORT INFORMATION
  Report Type: 
  Country: None (occurrence: None)
  Receive Date: 20081210
  Receipt Date: 20080312
  Transmission Date: 20090506
  Serious: Yes (Hospitalization)
  Sender: FDA-Public Use
  Company Number: US-AMGEN-STX269450

PATIENT
  Sex: Female
  Weight: 52.2 kg

DRUGS (6)
  1. ENBREL [Suspect]
     Indication: RHEUMATOID ARTHRITIS
     Route: 065
  2. HUMIRA [Suspect]
     Indication: RHEUMATOID ARTHRITIS
     Route: 058
     Dates: start: 20040101
  3. REMICADE [Suspect]
     Indication: RHEUMATOID ARTHRITIS
  4. MOBIC [Concomitant]
     Indication: RHEUMATOID ARTHRITIS
     Route: 065
  5. METOPROLOL SUCCINATE [Concomitant]
     Route: 065
  6. ESOMEPRAZOLE MAGNESIUM [Concomitant]
     Route: 065

REACTIONS (3)
  - CEREBROVASCULAR ACCIDENT [None]
  - DRUG INEFFECTIVE [None]
  - INFUSION RELATED REACTION [None]
